FAERS Safety Report 6915285-7 (Version None)
Quarter: 2010Q3

REPORT INFORMATION
  Report Type: 
  Country: None (occurrence: None)
  Receive Date: 20100809
  Receipt Date: 20090804
  Transmission Date: 20110219
  Serious: No
  Sender: FDA-Public Use
  Company Number: US-ABBOTT-09P-163-0589323-00

PATIENT
  Sex: Female
  Weight: 104.42 kg

DRUGS (1)
  1. DEPAKOTE ER [Suspect]
     Indication: DEPRESSION
     Dates: start: 20020101, end: 20090601

REACTIONS (2)
  - INCORRECT DRUG ADMINISTRATION DURATION [None]
  - TARDIVE DYSKINESIA [None]
